FAERS Safety Report 7953787-5 (Version None)
Quarter: 2011Q4

REPORT INFORMATION
  Report Type: 
  Country: None (occurrence: None)
  Receive Date: 20111202
  Receipt Date: 20111125
  Transmission Date: 20120403
  Serious: Yes (Hospitalization)
  Sender: FDA-Public Use
  Company Number: FR-B.I. PHARMACEUTICALS,INC./RIDGEFIELD-2011-FF-01092FF

PATIENT
  Age: 54 Year
  Sex: Female

DRUGS (6)
  1. MICARDIS [Suspect]
     Route: 048
  2. PREDNISONE TAB [Suspect]
     Indication: RHEUMATOID ARTHRITIS
     Dosage: 5 MG
     Route: 048
  3. CALCIUM CARBONATE [Suspect]
     Route: 048
  4. METHOTREXATE [Suspect]
     Indication: RHEUMATOID ARTHRITIS
     Dosage: 2.1429 MG
     Route: 048
     Dates: end: 20110903
  5. ACTONEL [Suspect]
     Dosage: 0.1429 NR
     Route: 048
     Dates: end: 20110903
  6. LERCANIDIPINE [Suspect]

REACTIONS (4)
  - CONFUSIONAL STATE [None]
  - PAIN [None]
  - ANTEROGRADE AMNESIA [None]
  - ASTHENIA [None]
